FAERS Safety Report 6368822-8 (Version None)
Quarter: 2009Q3

REPORT INFORMATION
  Report Type: 
  Country: None (occurrence: None)
  Receive Date: 20090918
  Receipt Date: 20090918
  Transmission Date: 20100115
  Serious: No
  Sender: FDA-Public Use
  Company Number: None

PATIENT
  Sex: Female
  Weight: 58.9676 kg

DRUGS (1)
  1. DORZOLAMIDE HCL AND TIMOLOL MALEATE [Suspect]
     Indication: OPEN ANGLE GLAUCOMA
     Dosage: 1 GTT BID TOPICAL
     Route: 061
     Dates: start: 20081202, end: 20090826

REACTIONS (2)
  - EYE IRRITATION [None]
  - PRODUCT SUBSTITUTION ISSUE [None]
